FAERS Safety Report 7303994-X (Version None)
Quarter: 2011Q1

REPORT INFORMATION
  Report Type: 
  Country: None (occurrence: None)
  Receive Date: 20110221
  Receipt Date: 20110215
  Transmission Date: 20110831
  Serious: Yes (Other)
  Sender: FDA-Public Use
  Company Number: HR-MERCK-1102USA01818

PATIENT
  Age: 49 Year
  Sex: Female

DRUGS (4)
  1. AGLURAB [Concomitant]
     Indication: DIABETES MELLITUS
     Route: 048
  2. COZAAR [Concomitant]
     Indication: HYPERTENSION
     Route: 048
  3. CONCOR COR [Concomitant]
     Indication: HYPERTENSION
     Route: 048
  4. JANUVIA [Suspect]
     Indication: DIABETES MELLITUS
     Route: 048
     Dates: start: 20100910, end: 20101001

REACTIONS (3)
  - CHEST PAIN [None]
  - CONSTIPATION [None]
  - MYOPATHY [None]
